FAERS Safety Report 10983438 (Version 1)
Quarter: 2015Q2

REPORT INFORMATION
  Report Type: Spontaneous
  Country: DE (occurrence: DE)
  Receive Date: 20150403
  Receipt Date: 20150403
  Transmission Date: 20150821
  Serious: Yes (Other)
  Sender: FDA-Public Use
  Company Number: DE-BRISTOL-MYERS SQUIBB COMPANY-16851230

PATIENT
  Age: 8 Year
  Sex: Female

DRUGS (1)
  1. ABILIFY [Suspect]
     Active Substance: ARIPIPRAZOLE
     Indication: DISTURBANCE IN SOCIAL BEHAVIOUR
     Dosage: INCREASING DOSES FROM 2.5MG UP TO 7.5MG
     Route: 065
     Dates: start: 2006

REACTIONS (7)
  - Headache [Recovered/Resolved]
  - Peripheral coldness [Recovered/Resolved]
  - Abdominal pain upper [Recovered/Resolved]
  - Nausea [Recovered/Resolved]
  - Off label use [Unknown]
  - Aggression [Unknown]
  - Liver function test abnormal [Unknown]

NARRATIVE: CASE EVENT DATE: 2006
